FAERS Safety Report 4307777-4 (Version None)
Quarter: 2004Q1

REPORT INFORMATION
  Report Type: 
  Country: None (occurrence: None)
  Receive Date: 20040225
  Receipt Date: 20030507
  Transmission Date: 20041129
  Serious: Yes (Other)
  Sender: FDA-Public Use
  Company Number: WAES 0305USA01301

PATIENT
  Age: 49 Year
  Sex: Male

DRUGS (5)
  1. ZOCOR [Suspect]
     Dosage: PO
     Route: 048
     Dates: end: 20020601
  2. PRILOSEC [Concomitant]
  3. VICODIN ES [Concomitant]
  4. ASPIRIN [Concomitant]
  5. ATENOLOL [Concomitant]

REACTIONS (4)
  - ARTHRALGIA [None]
  - MUSCULOSKELETAL STIFFNESS [None]
  - MYOSITIS [None]
  - RHABDOMYOLYSIS [None]
